FAERS Safety Report 10568566 (Version 1)
Quarter: 2014Q4

REPORT INFORMATION
  Report Type: Spontaneous
  Country: GB (occurrence: GB)
  Receive Date: 20141106
  Receipt Date: 20141106
  Transmission Date: 20150529
  Serious: Yes (Hospitalization)
  Sender: FDA-Public Use
  Company Number: GB-SA-2014SA150844

PATIENT

DRUGS (1)
  1. LEMTRADA [Suspect]
     Active Substance: ALEMTUZUMAB
     Indication: MULTIPLE SCLEROSIS
     Route: 042

REACTIONS (5)
  - Fatigue [Recovered/Resolved]
  - Immune system disorder [Recovered/Resolved]
  - Rash [Recovered/Resolved]
  - Sensory disturbance [Recovered/Resolved]
  - Dystonia [Not Recovered/Not Resolved]
